FAERS Safety Report 7466442-5 (Version None)
Quarter: 2011Q2

REPORT INFORMATION
  Report Type: 
  Country: None (occurrence: None)
  Receive Date: 20110509
  Receipt Date: 20110421
  Transmission Date: 20111010
  Serious: No
  Sender: FDA-Public Use
  Company Number: US-B.I. PHARMACEUTICALS,INC./RIDGEFIELD-2011-BP-02255BP

PATIENT
  Age: 71 Year
  Sex: Male

DRUGS (9)
  1. PROPAFENONE HCL [Suspect]
     Dosage: 675 MG
     Route: 048
  2. LISINOPRIL [Concomitant]
     Dosage: 40 MG
  3. PRADAXA [Suspect]
     Indication: ATRIAL FIBRILLATION
     Dosage: 300 MG
     Route: 048
  4. PRADAXA [Suspect]
     Indication: HEART RATE IRREGULAR
  5. DIGOXIN [Suspect]
     Indication: ATRIAL FIBRILLATION
     Dosage: 0.25 MG
     Route: 048
  6. OMEPRAZOLE [Concomitant]
     Dosage: 20 MG
  7. ASPIRIN [Concomitant]
     Dosage: 81 MG
  8. LIPITOR [Concomitant]
     Dosage: 20 MG
  9. PROPAFENONE HCL [Suspect]
     Indication: ATRIAL FIBRILLATION
     Dosage: 450 MG
     Route: 048

REACTIONS (1)
  - PALPITATIONS [None]
